FAERS Safety Report 7150890-7 (Version None)
Quarter: 2010Q4

REPORT INFORMATION
  Report Type: 
  Country: None (occurrence: None)
  Receive Date: 20101210
  Receipt Date: 20101202
  Transmission Date: 20110411
  Serious: Yes (Other)
  Sender: FDA-Public Use
  Company Number: BR-ROCHE-746593

PATIENT
  Sex: Female
  Weight: 98 kg

DRUGS (2)
  1. XENICAL [Suspect]
     Indication: WEIGHT CONTROL
     Dosage: DOSE: 1 CAPSULE PER DAY
     Route: 048
     Dates: start: 20101001
  2. XENICAL [Suspect]
     Dosage: DOSE: 2 CAPSULE PER DAY
     Route: 048

REACTIONS (3)
  - CONSTIPATION [None]
  - DRUG INEFFECTIVE [None]
  - INTERVERTEBRAL DISC PROTRUSION [None]
